FAERS Safety Report 7066293-X (Version None)
Quarter: 2010Q4

REPORT INFORMATION
  Report Type: 
  Country: None (occurrence: None)
  Receive Date: 20101027
  Receipt Date: 20100430
  Transmission Date: 20110411
  Serious: Yes (Other)
  Sender: FDA-Public Use
  Company Number: US-WYE-H03883708

PATIENT
  Sex: Female
  Weight: 51.3 kg

DRUGS (5)
  1. PREMPRO [Suspect]
     Indication: HOT FLUSH
  2. PREMPRO [Suspect]
     Indication: MOOD SWINGS
  3. ESTRACE [Suspect]
     Indication: VULVOVAGINAL PRURITUS
  4. PROMETRIUM [Suspect]
     Indication: HOT FLUSH
  5. PROMETRIUM [Suspect]
     Indication: MOOD SWINGS

REACTIONS (1)
  - BREAST CANCER [None]
